FAERS Safety Report 10661396 (Version 2)
Quarter: 2014Q4

REPORT INFORMATION
  Report Type: Spontaneous
  Country: US (occurrence: US)
  Receive Date: 20141218
  Receipt Date: 20141218
  Transmission Date: 20150529
  Serious: Yes (Other)
  Sender: FDA-Public Use
  Company Number: US-RANBAXY-2014US-90369

PATIENT
  Age: 16 Year
  Sex: Male

DRUGS (1)
  1. ABSORICA [Suspect]
     Active Substance: ISOTRETINOIN
     Indication: ACNE
     Dosage: 40 MG, QD
     Route: 065
     Dates: start: 20141119

REACTIONS (4)
  - Dry skin [Not Recovered/Not Resolved]
  - Dysphagia [Recovered/Resolved]
  - Chapped lips [Not Recovered/Not Resolved]
  - Uvulitis [Unknown]

NARRATIVE: CASE EVENT DATE: 20141123
